FAERS Safety Report 10265096 (Version 1)
Quarter: 2014Q2

REPORT INFORMATION
  Report Type: Report from Study
  Country: US (occurrence: US)
  Receive Date: 20140627
  Receipt Date: 20140627
  Transmission Date: 20141212
  Serious: Yes (Hospitalization, Other)
  Sender: FDA-Public Use
  Company Number: US-ALEXION PHARMACEUTICALS INC.-A201305283

PATIENT
  Sex: 0

DRUGS (1)
  1. SOLIRIS [Suspect]
     Indication: HAEMOLYTIC URAEMIC SYNDROME
     Dosage: UNK
     Route: 042
     Dates: start: 20131016

REACTIONS (5)
  - Diarrhoea haemorrhagic [Unknown]
  - Colitis [Unknown]
  - Abdominal pain [Unknown]
  - Vomiting [Unknown]
  - Nausea [Unknown]
